FAERS Safety Report 5836728-6 (Version None)
Quarter: 2008Q3

REPORT INFORMATION
  Report Type: 
  Country: None (occurrence: None)
  Receive Date: 20080807
  Receipt Date: 20080729
  Transmission Date: 20090109
  Serious: Yes (Hospitalization)
  Sender: FDA-Public Use
  Company Number: US-AMGEN-QUU289202

PATIENT
  Sex: Male
  Weight: 79 kg

DRUGS (20)
  1. ENBREL [Suspect]
     Indication: RHEUMATOID ARTHRITIS
     Route: 058
     Dates: start: 20010801
  2. ENBREL [Suspect]
     Indication: ANKYLOSING SPONDYLITIS
  3. METHOTREXATE [Concomitant]
  4. FOLIC ACID [Concomitant]
  5. WELLBUTRIN [Concomitant]
  6. XANAX [Concomitant]
  7. SEROQUEL [Concomitant]
  8. LOPRESSOR [Concomitant]
  9. TRICOR [Concomitant]
  10. ZANAFLEX [Concomitant]
  11. DARVOCET-N 100 [Concomitant]
  12. ZYRTEC [Concomitant]
  13. MULTI-VITAMINS [Concomitant]
  14. UNSPECIFIED MEDICATION [Concomitant]
  15. CHONDROITIN [Concomitant]
  16. CALCIUM [Concomitant]
  17. ALEVE [Concomitant]
  18. FISH OIL [Concomitant]
  19. ASPIRIN [Concomitant]
  20. VITAMIN D [Concomitant]

REACTIONS (5)
  - DEEP VEIN THROMBOSIS [None]
  - HYPERLIPIDAEMIA [None]
  - HYPERTENSION [None]
  - RHINITIS ALLERGIC [None]
  - THROMBOPHLEBITIS SUPERFICIAL [None]
